FAERS Safety Report 17578466 (Version 2)
Quarter: 2020Q1

REPORT INFORMATION
  Report Type: Report from Study
  Country: IT (occurrence: IT)
  Receive Date: 20200324
  Receipt Date: 20200331
  Transmission Date: 20200409
  Serious: Yes (Hospitalization)
  Sender: FDA-Public Use
  Company Number: IT-BRISTOL-MYERS SQUIBB COMPANY-BMS-2020-024090

PATIENT
  Age: 79 Year
  Sex: Male

DRUGS (3)
  1. PREDNISONE. [Interacting]
     Active Substance: PREDNISONE
     Indication: TEMPORAL ARTERITIS
     Dosage: 5 MILLIGRAM CYCLICAL
     Route: 048
     Dates: start: 20180601
  2. ACETYLSALICYLIC ACID [Interacting]
     Active Substance: ASPIRIN
     Indication: ATRIAL FLUTTER
     Dosage: 100 MILLIGRAM, QD
     Route: 048
     Dates: end: 20200129
  3. APIXABAN [Suspect]
     Active Substance: APIXABAN
     Indication: ATRIAL FLUTTER
     Dosage: 5 MILLIGRAM, 1 DAY
     Route: 048
     Dates: start: 20190327

REACTIONS (3)
  - Drug interaction [Recovering/Resolving]
  - Abdominal wall haematoma [Recovering/Resolving]
  - Spontaneous haematoma [Recovering/Resolving]

NARRATIVE: CASE EVENT DATE: 20200124
